FAERS Safety Report 18765190 (Version 1)
Quarter: 2021Q1

REPORT INFORMATION
  Report Type: Other
  Country: US (occurrence: US)
  Receive Date: 20210121
  Receipt Date: 20210121
  Transmission Date: 20210419
  Serious: Yes (Hospitalization)
  Sender: FDA-Public Use
  Company Number: US-ROCHE-2751143

PATIENT
  Sex: Male
  Weight: 155.27 kg

DRUGS (13)
  1. GABAPENTIN. [Concomitant]
     Active Substance: GABAPENTIN
  2. COLACE [Concomitant]
     Active Substance: DOCUSATE SODIUM
  3. IBUPROFEN. [Concomitant]
     Active Substance: IBUPROFEN
  4. REMDESIVIR. [Concomitant]
     Active Substance: REMDESIVIR
  5. OCREVUS [Suspect]
     Active Substance: OCRELIZUMAB
     Indication: MULTIPLE SCLEROSIS
     Dosage: TIMES TWO ^HALF?DOSES^ ;ONGOING: NO,300 MG DAY 1, 300 MG DAY 15
     Route: 042
     Dates: start: 202001, end: 202001
  6. SENNA [Concomitant]
     Active Substance: SENNA LEAF\SENNOSIDES\SENNOSIDES A AND B
  7. OCREVUS [Suspect]
     Active Substance: OCRELIZUMAB
     Dosage: ^FULL?DOSE^ ;ONGOING: YES,600 MG Q6 MONTHS
     Route: 042
     Dates: start: 202007
  8. WARFARIN [Concomitant]
     Active Substance: WARFARIN
     Indication: THROMBOSIS
     Dosage: TAKE 10 MG BY MOUTH DAILY
     Dates: start: 20201229
  9. MELATONIN [Concomitant]
     Active Substance: MELATONIN
  10. ATORVASTATIN [Concomitant]
     Active Substance: ATORVASTATIN
  11. POLYETHYLENE GLYCOL [Concomitant]
     Active Substance: POLYETHYLENE GLYCOLS
  12. ASPRIN [Concomitant]
     Active Substance: ASPIRIN
     Dosage: TAKE 81 MG BY MOUTH DAILY
     Route: 048
  13. VITAMIN D [ERGOCALCIFEROL] [Concomitant]
     Active Substance: ERGOCALCIFEROL
     Route: 048

REACTIONS (1)
  - COVID-19 [Not Recovered/Not Resolved]
